FAERS Safety Report 8836853 (Version 1)
Quarter: 2012Q4

REPORT INFORMATION
  Report Type: Spontaneous
  Country: US (occurrence: None)
  Receive Date: 20121012
  Receipt Date: 20121012
  Transmission Date: 20130627
  Serious: Yes (Other)
  Sender: FDA-Public Use
  Company Number: None

PATIENT

DRUGS (1)
  1. METHYLPREDNISOLONE [Suspect]

REACTIONS (9)
  - Ear pain [None]
  - Oropharyngeal pain [None]
  - Pyrexia [None]
  - Amnesia [None]
  - Thirst [None]
  - White blood cell count increased [None]
  - Feeling abnormal [None]
  - Somnolence [None]
  - Feeling abnormal [None]
